FAERS Safety Report 7019041-3 (Version None)
Quarter: 2010Q3

REPORT INFORMATION
  Report Type: 
  Country: None (occurrence: None)
  Receive Date: 20100928
  Receipt Date: 20100924
  Transmission Date: 20110219
  Serious: Yes (Hospitalization)
  Sender: FDA-Public Use
  Company Number: A0836527A

PATIENT
  Age: 60 Year
  Sex: Male
  Weight: 69.1 kg

DRUGS (1)
  1. AVANDIA [Suspect]
     Indication: DIABETES MELLITUS
     Dosage: 4MG PER DAY
     Route: 065
     Dates: start: 20040801, end: 20070801

REACTIONS (5)
  - ANGINA UNSTABLE [None]
  - ASTHENIA [None]
  - CORONARY ARTERY DISEASE [None]
  - EMOTIONAL DISTRESS [None]
  - FATIGUE [None]
